FAERS Safety Report 7192886-5 (Version None)
Quarter: 2010Q4

REPORT INFORMATION
  Report Type: 
  Country: None (occurrence: None)
  Receive Date: 20101223
  Receipt Date: 20100829
  Transmission Date: 20110411
  Serious: No
  Sender: FDA-Public Use
  Company Number: US-AMGEN-TCS434789

PATIENT

DRUGS (1)
  1. ENBREL [Suspect]
     Indication: PSORIASIS
     Dosage: 50 MG, 2 TIMES/WK

REACTIONS (5)
  - NASOPHARYNGITIS [None]
  - PRODUCTIVE COUGH [None]
  - PSORIASIS [None]
  - PYREXIA [None]
  - SPUTUM DISCOLOURED [None]
